FAERS Safety Report 23643450 (Version 1)
Quarter: 2024Q1

REPORT INFORMATION
  Report Type: Spontaneous
  Country: US (occurrence: None)
  Receive Date: 20240316
  Receipt Date: 20240316
  Transmission Date: 20240410
  Serious: Yes (Hospitalization)
  Sender: FDA-Public Use
  Company Number: None

PATIENT
  Sex: Male
  Weight: 62.8 kg

DRUGS (3)
  1. FLUOROURACIL [Suspect]
     Active Substance: FLUOROURACIL
  2. LEUCOVORIN CALCIUM [Suspect]
  3. OXALIPLATIN (ELOXATIN) [Concomitant]

REACTIONS (9)
  - Colostomy [None]
  - Abdominal pain lower [None]
  - Nausea [None]
  - Vomiting [None]
  - Infusion related reaction [None]
  - Therapy interrupted [None]
  - Enteritis [None]
  - Dehydration [None]
  - Fatigue [None]

NARRATIVE: CASE EVENT DATE: 20240313
